FAERS Safety Report 9224879 (Version 2)
Quarter: 2013Q2

REPORT INFORMATION
  Report Type: Spontaneous
  Country: IT (occurrence: None)
  Receive Date: 20130409
  Receipt Date: 20130415
  Transmission Date: 20140414
  Serious: Yes (Hospitalization)
  Sender: FDA-Public Use
  Company Number: AUR-APL-2013-02900

PATIENT
  Age: 85 Year
  Sex: Male

DRUGS (2)
  1. RAMIPRIL [Suspect]
     Indication: HYPERTENSION
     Dosage: (1 DOSAGE FORMS, 1 D), ORAL?
     Route: 048
     Dates: start: 20120227, end: 20130227
  2. COUMADIN (WARFARIN SODIUM) [Suspect]
     Indication: ATRIAL FIBRILLATION
     Dosage: (1 DOSAGE FORMS, 1 D), ORAL
     Route: 048
     Dates: start: 20120227, end: 20130227

REACTIONS (8)
  - Asthenia [None]
  - Dysarthria [None]
  - International normalised ratio increased [None]
  - Overdose [None]
  - Cardiac failure [None]
  - Hypertension [None]
  - Hyperkalaemia [None]
  - Renal failure chronic [None]
